FAERS Safety Report 10261929 (Version 1)
Quarter: 2014Q2

REPORT INFORMATION
  Report Type: Report from Study
  Country: US (occurrence: US)
  Receive Date: 20140626
  Receipt Date: 20140626
  Transmission Date: 20141212
  Serious: Yes (Hospitalization, Other)
  Sender: FDA-Public Use
  Company Number: US-JNJFOC-20140615501

PATIENT
  Sex: Male

DRUGS (2)
  1. XARELTO [Suspect]
     Indication: PULMONARY THROMBOSIS
     Route: 048
  2. XARELTO [Suspect]
     Indication: PERIPHERAL EMBOLISM
     Route: 048

REACTIONS (5)
  - Cardiac disorder [Unknown]
  - Urticaria [Unknown]
  - Dyspnoea [Unknown]
  - Weight decreased [Unknown]
  - Malaise [Unknown]
